FAERS Safety Report 8264520-4 (Version None)
Quarter: 2012Q2

REPORT INFORMATION
  Report Type: 
  Country: None (occurrence: None)
  Receive Date: 20120406
  Receipt Date: 20120330
  Transmission Date: 20120825
  Serious: Yes (Hospitalization)
  Sender: FDA-Public Use
  Company Number: CH-US-EMD SERONO, INC.-7122781

PATIENT
  Sex: Female

DRUGS (6)
  1. ALDACTONE [Concomitant]
     Indication: HYPERTENSION
  2. DAFLON [Concomitant]
     Indication: VEIN DISORDER
  3. REBIF [Suspect]
     Indication: MULTIPLE SCLEROSIS
     Route: 058
     Dates: start: 20011101
  4. EFFEXOR [Concomitant]
     Indication: DEPRESSION
  5. EXFORGE [Concomitant]
     Indication: HYPERTENSION
  6. RANIMED [Concomitant]
     Indication: ABDOMINAL DISCOMFORT

REACTIONS (2)
  - SUICIDAL IDEATION [None]
  - DEPRESSION [None]
